FAERS Safety Report 16692239 (Version 1)
Quarter: 2019Q3

REPORT INFORMATION
  Report Type: Spontaneous
  Country: DE (occurrence: DE)
  Receive Date: 20190812
  Receipt Date: 20190812
  Transmission Date: 20191004
  Serious: Yes (Hospitalization, Other)
  Sender: FDA-Public Use
  Company Number: DE-MYLANLABS-2019M1074538

PATIENT
  Age: 71 Year
  Sex: Female
  Weight: 95 kg

DRUGS (2)
  1. AMIODARONE [Suspect]
     Active Substance: AMIODARONE
     Indication: ARRHYTHMIA
     Dosage: 200 MILLIGRAM, QD
     Dates: start: 20170123, end: 20181216
  2. CARBIMAZOL [Concomitant]
     Active Substance: CARBIMAZOLE
     Indication: HYPERTHYROIDISM
     Dosage: 20 MILLIGRAM, QD

REACTIONS (9)
  - Bronchiectasis [Unknown]
  - Cor pulmonale [Unknown]
  - Dyspnoea [Not Recovered/Not Resolved]
  - Pulmonary fibrosis [Unknown]
  - Alveolitis [Unknown]
  - Impaired work ability [Unknown]
  - Pulmonary toxicity [Unknown]
  - Acute respiratory distress syndrome [Unknown]
  - Asthenia [Not Recovered/Not Resolved]

NARRATIVE: CASE EVENT DATE: 201809
